FAERS Safety Report 6567989-6 (Version None)
Quarter: 2010Q1

REPORT INFORMATION
  Report Type: 
  Country: None (occurrence: None)
  Receive Date: 20100203
  Receipt Date: 20100127
  Transmission Date: 20100710
  Serious: Yes (Other)
  Sender: FDA-Public Use
  Company Number: GB-BRISTOL-MYERS SQUIBB COMPANY-14953343

PATIENT
  Age: 46 Year
  Sex: Female

DRUGS (1)
  1. DASATINIB [Suspect]

REACTIONS (1)
  - OPEN ANGLE GLAUCOMA [None]
